FAERS Safety Report 21670869 (Version 1)
Quarter: 2022Q4

REPORT INFORMATION
  Report Type: Spontaneous
  Country: IN (occurrence: IN)
  Receive Date: 20221202
  Receipt Date: 20221202
  Transmission Date: 20230113
  Serious: Yes (Hospitalization, Other)
  Sender: FDA-Public Use
  Company Number: IN-BAXTER-2022BAX025542

PATIENT
  Age: 24 Day
  Sex: Female

DRUGS (4)
  1. MIDAZOLAM [Suspect]
     Active Substance: MIDAZOLAM
     Indication: Sedative therapy
     Dosage: 0.1 MG/KG, DILUTED WITH 1ML OF DEXTROSE 5% SOLUTION, GRADUALLY OVER 3 MIN
     Route: 042
  2. DEXTROSE [Suspect]
     Active Substance: DEXTROSE
     Indication: Medication dilution
     Dosage: 1 ML, TOTAL (5 %)
     Route: 042
  3. PHENOBARBITAL [Concomitant]
     Active Substance: PHENOBARBITAL
     Indication: Neonatal seizure
     Dosage: LOADING DOSE OF 20 MG/KG
     Route: 065
  4. TROPICAMIDE [Concomitant]
     Active Substance: TROPICAMIDE
     Dosage: 0.8 %
     Route: 061

REACTIONS (2)
  - Dyskinesia [Recovered/Resolved]
  - Partial seizures [Recovered/Resolved]
